FAERS Safety Report 12590849 (Version 2)
Quarter: 2022Q4

REPORT INFORMATION
  Report Type: Report from Study
  Country: US (occurrence: US)
  Receive Date: 20160726
  Receipt Date: 20221213
  Transmission Date: 20230113
  Serious: Yes (Other)
  Sender: FDA-Public Use
  Company Number: US-AMGEN-USASL2016094749

PATIENT
  Age: 55 Year
  Sex: Female

DRUGS (4)
  1. ENBREL [Suspect]
     Active Substance: ETANERCEPT
     Indication: Rheumatoid arthritis
     Dosage: UNK
     Route: 065
  2. ENBREL [Suspect]
     Active Substance: ETANERCEPT
     Dosage: UNK UNK, QWK
     Route: 065
  3. ENBREL [Suspect]
     Active Substance: ETANERCEPT
     Dosage: 50 ML/MG
     Route: 065
     Dates: end: 202208
  4. ORENCIA [Concomitant]
     Active Substance: ABATACEPT

REACTIONS (11)
  - Squamous cell carcinoma of the tongue [Unknown]
  - Arthrodesis [Unknown]
  - Infection [Unknown]
  - Drug ineffective [Unknown]
  - Sinusitis [Unknown]
  - White blood cell disorder [Unknown]
  - Bone disorder [Unknown]
  - Nasal polypectomy [Unknown]
  - Nasal septum deviation [Unknown]
  - Mouth injury [Unknown]
  - Ear disorder [Unknown]

NARRATIVE: CASE EVENT DATE: 20140101
